FAERS Safety Report 9519288 (Version 1)
Quarter: 2013Q3

REPORT INFORMATION
  Report Type: Report from Study
  Country: FR (occurrence: FR)
  Receive Date: 20130912
  Receipt Date: 20130912
  Transmission Date: 20140515
  Serious: Yes (Hospitalization)
  Sender: FDA-Public Use
  Company Number: FR-ABBOTT-13P-056-1142231-00

PATIENT
  Age: 47 Year
  Sex: Male

DRUGS (6)
  1. HUMIRA [Suspect]
     Indication: RHEUMATOID ARTHRITIS
     Route: 058
     Dates: start: 20130525
  2. ARAVA [Concomitant]
     Indication: RHEUMATOID ARTHRITIS
     Dates: start: 20120531
  3. CHRONOINDOCID [Concomitant]
     Indication: RHEUMATOID ARTHRITIS
     Dates: start: 20110501
  4. INDOCID [Concomitant]
     Indication: RHEUMATOID ARTHRITIS
     Dates: start: 20110501
  5. INEXIUM [Concomitant]
     Indication: PROPHYLAXIS AGAINST GASTROINTESTINAL ULCER
     Dates: start: 201105, end: 201306
  6. TOPALGIC [Concomitant]
     Indication: RHEUMATOID ARTHRITIS
     Dates: start: 201306, end: 201307

REACTIONS (1)
  - Tendonitis [Recovered/Resolved]
